FAERS Safety Report 10559772 (Version 1)
Quarter: 2014Q4

REPORT INFORMATION
  Report Type: Spontaneous
  Country: US (occurrence: US)
  Receive Date: 20141103
  Receipt Date: 20141103
  Transmission Date: 20150529
  Serious: No
  Sender: FDA-Public Use
  Company Number: US-PFIZER INC-2014301480

PATIENT
  Age: 73 Year
  Sex: Male
  Weight: 115 kg

DRUGS (6)
  1. VITAMIN D3 [Concomitant]
     Active Substance: CHOLECALCIFEROL
     Dosage: 1000 IU AT NIGHT AND 1000 IU IN MORNING
  2. ADVIL [Suspect]
     Active Substance: IBUPROFEN
     Dosage: 200 MG, AT FOUR TABLETS AT 2.45AM AND FOUR TABLETS AT 6 AM
  3. L- ARGININE [Concomitant]
     Dosage: 1000 MG, UNK
  4. PROBIOTIC [Concomitant]
     Active Substance: PROBIOTICS NOS
     Indication: PROBIOTIC THERAPY
  5. NEXIUM [Concomitant]
     Active Substance: ESOMEPRAZOLE MAGNESIUM
     Dosage: 40 MG, UNK
  6. AMLODIPINE [Concomitant]
     Active Substance: AMLODIPINE BESYLATE
     Dosage: 5 MG, DAILY

REACTIONS (2)
  - Prescribed overdose [Unknown]
  - Hyperhidrosis [Unknown]

NARRATIVE: CASE EVENT DATE: 20141029
